FAERS Safety Report 25304848 (Version 1)
Quarter: 2025Q2

REPORT INFORMATION
  Report Type: Spontaneous
  Country: AU (occurrence: None)
  Receive Date: 20250513
  Receipt Date: 20250513
  Transmission Date: 20250716
  Serious: Yes (Other)
  Sender: INCYTE
  Company Number: AU-002147023-NVSC2025AU072731

PATIENT
  Age: 74 Year

DRUGS (1)
  1. RUXOLITINIB [Suspect]
     Active Substance: RUXOLITINIB
     Indication: Primary myelofibrosis
     Dosage: 20 MG, BID

REACTIONS (1)
  - Chest pain [Not Recovered/Not Resolved]
